FAERS Safety Report 20226033 (Version 1)
Quarter: 2021Q4

REPORT INFORMATION
  Report Type: Spontaneous
  Country: GB (occurrence: GB)
  Receive Date: 20211224
  Receipt Date: 20211224
  Transmission Date: 20220303
  Serious: Yes (Other)
  Sender: FDA-Public Use
  Company Number: None

PATIENT
  Age: 85 Year
  Sex: Female
  Weight: 75 kg

DRUGS (11)
  1. LOSARTAN [Suspect]
     Active Substance: LOSARTAN
     Dosage: 12.5 MG
     Route: 048
  2. AMITRIPTYLINE [Concomitant]
     Active Substance: AMITRIPTYLINE
     Dosage: 25 MILLIGRAM DAILY; AT NIGHT
     Dates: start: 20210913
  3. AMLODIPINE [Concomitant]
     Active Substance: AMLODIPINE BESYLATE
     Dosage: 10 MILLIGRAM DAILY;
     Dates: start: 20210913
  4. ATENOLOL [Concomitant]
     Active Substance: ATENOLOL
     Dosage: 50 MILLIGRAM DAILY; EVERY EVENING
     Dates: start: 20210913
  5. ATORVASTATIN [Concomitant]
     Active Substance: ATORVASTATIN
     Dosage: 20 MILLIGRAM DAILY;
     Dates: start: 20210913
  6. FOLIC ACID [Concomitant]
     Active Substance: FOLIC ACID
     Dosage: 5 MILLIGRAM DAILY;
     Dates: start: 20211115
  7. INDAPAMIDE [Concomitant]
     Active Substance: INDAPAMIDE
     Dosage: 2.5 MILLIGRAM DAILY;
     Dates: start: 20210913
  8. MACROBID [Concomitant]
     Active Substance: NITROFURANTOIN\NITROFURANTOIN MONOHYDRATE
     Dosage: 200 MILLIGRAM DAILY;
     Dates: start: 20211201
  9. PREGABALIN [Concomitant]
     Active Substance: PREGABALIN
     Dosage: 300 MILLIGRAM DAILY; 2 IN THE MORNING AND 2 AT NIGHT
     Dates: start: 20211112
  10. PREGABALIN [Concomitant]
     Active Substance: PREGABALIN
     Dosage: 225 MILLIGRAM DAILY; 1 IN THE MORNING AND 2 AT NIGHT
     Dates: start: 20211109, end: 20211112
  11. PREGABALIN [Concomitant]
     Active Substance: PREGABALIN
     Dosage: 300 MILLIGRAM DAILY; 1 IN THE MORNING AND 1 AT NIGHT
     Dates: start: 20211112, end: 20211208

REACTIONS (1)
  - Acute kidney injury [Recovering/Resolving]
